FAERS Safety Report 5534436-2 (Version None)
Quarter: 2007Q4

REPORT INFORMATION
  Report Type: 
  Country: None (occurrence: None)
  Receive Date: 20071205
  Receipt Date: 20071127
  Transmission Date: 20080405
  Serious: Yes (Other)
  Sender: FDA-Public Use
  Company Number: A0690167A

PATIENT
  Age: 38 Year
  Sex: Female

DRUGS (8)
  1. LAMOTRIGINE [Suspect]
     Indication: BIPOLAR DISORDER
     Route: 048
  2. SEROQUEL [Suspect]
     Indication: DRUG USE FOR UNKNOWN INDICATION
  3. FOLIC ACID [Concomitant]
     Dosage: 4MG PER DAY
  4. PRENATAL VITAMINS [Concomitant]
  5. GLUCOPHAGE [Concomitant]
     Dosage: 500MG PER DAY
     Dates: start: 20061215, end: 20070101
  6. CLOMID [Concomitant]
     Dosage: 50MG PER DAY
     Dates: start: 20061215, end: 20061220
  7. KLONOPIN [Concomitant]
     Dosage: .5MG PER DAY
  8. PROMETRIUM [Concomitant]
     Dosage: 200MG PER DAY
     Route: 048

REACTIONS (3)
  - DELIVERY [None]
  - DRUG EXPOSURE DURING PREGNANCY [None]
  - GESTATIONAL DIABETES [None]
